FAERS Safety Report 5393120-9 (Version None)
Quarter: 2007Q3

REPORT INFORMATION
  Report Type: 
  Country: None (occurrence: None)
  Receive Date: 20070719
  Receipt Date: 20070703
  Transmission Date: 20080115
  Serious: Yes (Other)
  Sender: FDA-Public Use
  Company Number: 8010595

PATIENT
  Age: 38 Year
  Sex: Female

DRUGS (1)
  1. KEPPRA [Suspect]
     Dosage: PO
     Route: 048
     Dates: end: 20050505

REACTIONS (3)
  - ABORTION INDUCED [None]
  - DRUG EXPOSURE DURING PREGNANCY [None]
  - UNINTENDED PREGNANCY [None]
